FAERS Safety Report 10442272 (Version 1)
Quarter: 2014Q3

REPORT INFORMATION
  Report Type: Other
  Country: GB (occurrence: GB)
  Receive Date: 20140909
  Receipt Date: 20140909
  Transmission Date: 20150326
  Serious: Yes (Hospitalization, Other)
  Sender: FDA-Public Use
  Company Number: GB-MYLAN-2014M1002968

PATIENT

DRUGS (17)
  1. CARBOMER [Concomitant]
     Active Substance: CARBOMER
     Dosage: USE WHEN REQUIRED FOR DRY EYES
     Route: 047
  2. SALBUTAMOL [Concomitant]
     Active Substance: ALBUTEROL
     Dosage: ONE TO TWO PUFFS AS REQUIRED
     Route: 055
  3. DIPYRIDAMOLE. [Concomitant]
     Active Substance: DIPYRIDAMOLE
     Route: 048
  4. TILDIEM LA [Concomitant]
     Active Substance: DILTIAZEM HYDROCHLORIDE
     Dosage: 300 MG, QD
     Route: 048
  5. GTN [Concomitant]
     Active Substance: NITROGLYCERIN
     Indication: CHEST PAIN
     Dosage: DISSOLVE ONE TABLET UNDER THE TONGUE WHEN REQUIRED FOR CHEST PAIN
     Route: 060
  6. SIMVASTATIN. [Suspect]
     Active Substance: SIMVASTATIN
     Dosage: 40 MG, QD (ONE AT NIGHT)
     Route: 048
  7. PANTOPRAZOLE [Concomitant]
     Active Substance: PANTOPRAZOLE SODIUM
     Dosage: 40 MG, QD
     Route: 048
  8. NICORANDIL [Concomitant]
     Active Substance: NICORANDIL
     Dosage: HALF A TABLET TWICE A DAY
     Route: 048
  9. FLUOXETINE [Concomitant]
     Active Substance: FLUOXETINE\FLUOXETINE HYDROCHLORIDE
     Dosage: 20 MG, BID
     Route: 048
  10. REMEDEINE [Concomitant]
     Dosage: 2 TABLETS FOUR TIMES A DAY WHEN REQUIRED.
     Route: 048
  11. LYRICA [Concomitant]
     Active Substance: PREGABALIN
     Dosage: NOW STOPPED.
  12. EZETIMIBE. [Concomitant]
     Active Substance: EZETIMIBE
     Dosage: 10 MG, QD
     Route: 048
  13. BUDESONIDE. [Concomitant]
     Active Substance: BUDESONIDE
     Dosage: 100 ?G, BID
     Route: 055
  14. PREDNISOLONE. [Concomitant]
     Active Substance: PREDNISOLONE
     Dosage: 15 MG, QD
  15. METHOTREXATE [Concomitant]
     Active Substance: METHOTREXATE
     Dosage: NOW STOPPED.
  16. CLOPIDOGREL [Concomitant]
     Active Substance: CLOPIDOGREL BISULFATE
     Dosage: 75 MG, QD
     Route: 048
  17. RAMIPRIL. [Concomitant]
     Active Substance: RAMIPRIL
     Dosage: ONE TO BE TAKEN EACH MORNING
     Route: 048

REACTIONS (11)
  - Dry mouth [Recovering/Resolving]
  - Tremor [Recovering/Resolving]
  - Malaise [Recovering/Resolving]
  - Dry eye [Recovering/Resolving]
  - Pruritus [Recovering/Resolving]
  - Headache [Recovering/Resolving]
  - Arthralgia [Recovering/Resolving]
  - Pain in extremity [Recovering/Resolving]
  - Mood swings [Recovering/Resolving]
  - Nasal dryness [Recovering/Resolving]
  - Hyperhidrosis [Recovering/Resolving]
